FAERS Safety Report 12601533 (Version 1)
Quarter: 2016Q3

REPORT INFORMATION
  Report Type: Spontaneous
  Country: None (occurrence: None)
  Receive Date: 20160727
  Receipt Date: 20160727
  Transmission Date: 20161109
  Serious: Yes (Disabling)
  Sender: FDA-Public Use
  Company Number: None

PATIENT
  Age: 50 Year
  Sex: Female

DRUGS (1)
  1. CIPROFLOXACIN. [Suspect]
     Active Substance: CIPROFLOXACIN
     Indication: URINARY TRACT INFECTION
     Dates: start: 20131101, end: 20150615

REACTIONS (9)
  - Arthropathy [None]
  - Asthenia [None]
  - Tendonitis [None]
  - Muscle rupture [None]
  - Plantar fasciitis [None]
  - Pain in extremity [None]
  - Gait disturbance [None]
  - Blood urine [None]
  - Tendon rupture [None]

NARRATIVE: CASE EVENT DATE: 20131101
